FAERS Safety Report 7910258-X (Version None)
Quarter: 2011Q4

REPORT INFORMATION
  Report Type: 
  Country: None (occurrence: None)
  Receive Date: 20111111
  Receipt Date: 20111027
  Transmission Date: 20120403
  Serious: Yes (Other)
  Sender: FDA-Public Use
  Company Number: CA-ROCHE-GNE304994

PATIENT
  Sex: Male

DRUGS (8)
  1. XOLAIR [Suspect]
     Indication: ASTHMA
     Dosage: 300 MG, 1/MONTH
     Route: 058
     Dates: start: 20100215
  2. XOLAIR [Suspect]
     Dates: start: 20100315
  3. CICLESONIDE [Concomitant]
  4. SYMBICORT [Concomitant]
  5. XOLAIR [Suspect]
     Route: 058
     Dates: start: 20110912
  6. XOLAIR [Suspect]
     Dates: start: 20111018
  7. VENTOLIN [Concomitant]
  8. PREDNISONE TAB [Concomitant]

REACTIONS (3)
  - BACK PAIN [None]
  - URTICARIA [None]
  - ASTHMATIC CRISIS [None]
